FAERS Safety Report 7638462-9 (Version None)
Quarter: 2011Q3

REPORT INFORMATION
  Report Type: 
  Country: None (occurrence: None)
  Receive Date: 20110720
  Receipt Date: 20110708
  Transmission Date: 20111222
  Serious: Yes (Life-Threatening)
  Sender: FDA-Public Use
  Company Number: 874021

PATIENT
  Age: 74 Year
  Sex: Female

DRUGS (7)
  1. (CLENIL /00212602/) [Concomitant]
  2. VANCOMYCIN HYCHLORIDE [Suspect]
     Indication: URINARY TRACT INFECTION
     Dosage: 2 G GRAM(S)   INTRAVENOUS (NOT OTHERWISE SPECIFIED)
     Route: 042
     Dates: start: 20110323, end: 20110323
  3. (OXIVENT) [Concomitant]
  4. LANSOPRAZOLE [Concomitant]
  5. MERREM [Concomitant]
  6. (PRITOR	/01102601/) [Concomitant]
  7. (BRONCOVALEAS /00139501/) [Concomitant]

REACTIONS (5)
  - LARYNGOTRACHEAL OEDEMA [None]
  - HYPOTENSION [None]
  - BRADYCARDIA [None]
  - ANAPHYLACTIC SHOCK [None]
  - BRONCHOSPASM [None]
